FAERS Safety Report 10039929 (Version 1)
Quarter: 2014Q1

REPORT INFORMATION
  Report Type: Report from Study
  Country: DE (occurrence: DE)
  Receive Date: 20140326
  Receipt Date: 20140326
  Transmission Date: 20141002
  Serious: Yes (Death, Other)
  Sender: FDA-Public Use
  Company Number: DE-TEVA-469449GER

PATIENT
  Age: 75 Year
  Sex: Male
  Weight: 61 kg

DRUGS (5)
  1. G-CSF (TEVAGRASTIM/RATIOGRASTIM) [Suspect]
     Indication: NEUTROPENIA
     Route: 058
     Dates: start: 20140225, end: 20140225
  2. DOCETAXEL [Concomitant]
     Indication: GASTRIC CANCER
     Dosage: 88 MILLIGRAM DAILY;
     Dates: start: 20140218, end: 2014
  3. FOLINIC ACID [Concomitant]
     Indication: GASTRIC CANCER
     Dosage: 360 MILLIGRAM DAILY;
     Dates: start: 20140218, end: 2014
  4. OXALIPLATIN [Concomitant]
     Indication: GASTRIC CANCER
     Dosage: 150 MILLIGRAM DAILY;
     Dates: start: 20140218, end: 2014
  5. FLUOROURACIL [Concomitant]
     Indication: GASTRIC CANCER
     Dosage: 4600 MILLIGRAM DAILY;
     Dates: start: 20140218, end: 2014

REACTIONS (1)
  - Multi-organ failure [Fatal]
